FAERS Safety Report 4701888-7 (Version None)
Quarter: 2005Q2

REPORT INFORMATION
  Report Type: 
  Country: None (occurrence: None)
  Receive Date: 20050627
  Receipt Date: 20050610
  Transmission Date: 20051028
  Serious: Yes (Life-Threatening, Other)
  Sender: FDA-Public Use
  Company Number: 9039997-2005-00052

PATIENT
  Age: 20 Year
  Sex: Male

DRUGS (1)
  1. LEVULAN KERASTICK FOR TOP. SOLUTION 20% [Suspect]
     Indication: SKIN PAPILLOMA
     Dosage: 20% , ONCE, TOPICAL
     Route: 061
     Dates: start: 20050510

REACTIONS (1)
  - CONVULSION [None]
